FAERS Safety Report 14426023 (Version 1)
Quarter: 2018Q1

REPORT INFORMATION
  Report Type: Spontaneous
  Country: US (occurrence: US)
  Receive Date: 20180123
  Receipt Date: 20180123
  Transmission Date: 20180509
  Serious: No
  Sender: FDA-Public Use
  Company Number: US-SIGMAPHARM LABORATORIES, LLC-2017SIG00070

PATIENT
  Sex: Female
  Weight: 77.98 kg

DRUGS (7)
  1. LIOTHYRONINE SODIUM. [Suspect]
     Active Substance: LIOTHYRONINE SODIUM
     Dosage: 5 MCG, 1X/DAY
     Route: 048
     Dates: start: 20171101
  2. LEVOTHYROXINE (MYLAN) [Suspect]
     Active Substance: LEVOTHYROXINE
     Dosage: 137 MCG, 5X/WEEK
     Dates: start: 201705
  3. UNSPECIFIED SUPPLEMENTS [Concomitant]
  4. LIOTHYRONINE SODIUM. [Suspect]
     Active Substance: LIOTHYRONINE SODIUM
     Indication: BLOOD THYROID STIMULATING HORMONE INCREASED
     Dosage: UNK
     Dates: start: 2016, end: 201704
  5. LEVOTHYROXINE (MYLAN) [Suspect]
     Active Substance: LEVOTHYROXINE
     Dosage: 137 MCG, 1X/DAY
     Dates: start: 201701, end: 201705
  6. KLONOPIN [Concomitant]
     Active Substance: CLONAZEPAM
     Dosage: UNK, AS NEEDED
  7. METOPROLOL XL [Concomitant]
     Active Substance: METOPROLOL SUCCINATE
     Dosage: 25 MG, UNK

REACTIONS (3)
  - Food allergy [Not Recovered/Not Resolved]
  - Acne [Not Recovered/Not Resolved]
  - Reaction to excipient [Not Recovered/Not Resolved]

NARRATIVE: CASE EVENT DATE: 2017
